FAERS Safety Report 12317402 (Version 1)
Quarter: 2016Q2

REPORT INFORMATION
  Report Type: Spontaneous
  Country: US (occurrence: US)
  Receive Date: 20160429
  Receipt Date: 20160429
  Transmission Date: 20160815
  Serious: No
  Sender: FDA-Public Use
  Company Number: US-PFIZER INC-2016192846

PATIENT
  Age: 62 Year
  Sex: Male
  Weight: 127 kg

DRUGS (18)
  1. CORDARONE [Suspect]
     Active Substance: AMIODARONE HYDROCHLORIDE
     Indication: ATRIAL FIBRILLATION
     Dosage: 200 MG, 1X/DAY
     Route: 048
     Dates: start: 20130926
  2. BETAXOLOL HYDROCHLORIDE. [Concomitant]
     Active Substance: BETAXOLOL HYDROCHLORIDE
     Dosage: 10 MG, 1X/DAY
     Route: 048
     Dates: start: 20131230
  3. AMOXICILLIN. [Concomitant]
     Active Substance: AMOXICILLIN
     Indication: TOOTH DISORDER
     Dosage: 500 MG, AS NEEDED
     Route: 048
     Dates: start: 20111213
  4. LISINOPRIL. [Concomitant]
     Active Substance: LISINOPRIL
     Dosage: UNK, 1X/DAY (20 TABLET. 1 ORAL DAILY)
     Dates: start: 20111206
  5. VYTORIN [Concomitant]
     Active Substance: EZETIMIBE\SIMVASTATIN
     Dosage: 10-40MG TABLET. 1 ORAL DAILY
     Route: 048
     Dates: start: 20111213
  6. SEROQUEL [Concomitant]
     Active Substance: QUETIAPINE FUMARATE
     Dosage: 200 MG, 1X/DAY
     Route: 048
  7. ASPIRIN. [Concomitant]
     Active Substance: ASPIRIN
     Dosage: 81 MG, DAILY (81MG TABLET. 3 ORAL DAILY)
     Route: 048
  8. ALIGN [Concomitant]
     Active Substance: BIFIDOBACTERIUM LONGUM SUBSP. INFANTIS
     Dosage: 4 MG, 1X/DAY
     Route: 048
  9. IPRATROPIUM BROMIDE. [Concomitant]
     Active Substance: IPRATROPIUM BROMIDE
     Dosage: UNK (250.00 SOLUTION )
     Dates: start: 20111011
  10. CLONAZEPAM. [Concomitant]
     Active Substance: CLONAZEPAM
     Dosage: 4 MG, DAILY
     Route: 048
  11. BETAXOLOL HYDROCHLORIDE. [Concomitant]
     Active Substance: BETAXOLOL HYDROCHLORIDE
     Dosage: 10 MG, 1X/DAY
     Dates: start: 20140826
  12. OXYGEN. [Concomitant]
     Active Substance: OXYGEN
     Dosage: 2 L, 1X/DAY (2L AT BEDTIME)
  13. CORDARONE [Suspect]
     Active Substance: AMIODARONE HYDROCHLORIDE
     Dosage: 200 MG, 1X/DAY
     Dates: start: 20140826
  14. LASIX [Concomitant]
     Active Substance: FUROSEMIDE
     Dosage: 20 MG, 1X/DAY
     Route: 048
  15. BETAXOLOL HYDROCHLORIDE. [Concomitant]
     Active Substance: BETAXOLOL HYDROCHLORIDE
     Dosage: 10 MG, 2X/DAY
     Route: 048
     Dates: start: 20111214
  16. FUROSEMIDE. [Concomitant]
     Active Substance: FUROSEMIDE
     Dosage: UNK (30.00 TABLET )
     Dates: start: 20111123
  17. ALBUTEROL SULFATE. [Concomitant]
     Active Substance: ALBUTEROL SULFATE
     Dosage: UNK ((2.5 MG/3ML) 0.083% NEBULIZED SOLN. INHALATION EVERY 4 HRS)
  18. SEROQUEL [Concomitant]
     Active Substance: QUETIAPINE FUMARATE
     Dosage: 50 MG, 1X/DAY
     Route: 048

REACTIONS (1)
  - Fatigue [Unknown]
